FAERS Safety Report 25016700 (Version 1)
Quarter: 2025Q1

REPORT INFORMATION
  Report Type: Spontaneous
  Country: IN (occurrence: IN)
  Receive Date: 20250227
  Receipt Date: 20250227
  Transmission Date: 20250409
  Serious: Yes (Life-Threatening)
  Sender: BAUSCH AND LOMB
  Company Number: IN-BAUSCH-BL-2025-002626

PATIENT
  Age: 16 Year
  Sex: Female

DRUGS (1)
  1. DEXAMETHASONE [Suspect]
     Active Substance: DEXAMETHASONE
     Indication: Lymphoproliferative disorder
     Route: 065

REACTIONS (1)
  - Melaena [Unknown]
